FAERS Safety Report 18429501 (Version 1)
Quarter: 2020Q4

REPORT INFORMATION
  Report Type: Spontaneous
  Country: US (occurrence: US)
  Receive Date: 20201026
  Receipt Date: 20201026
  Transmission Date: 20210114
  Serious: No
  Sender: FDA-Public Use
  Company Number: US-DERMIRA, INC.-US-2020DER000194

PATIENT
  Age: 54 Year
  Sex: Male
  Weight: 108.84 kg

DRUGS (3)
  1. QBREXZA [Suspect]
     Active Substance: GLYCOPYRRONIUM TOSYLATE
     Indication: HYPERHIDROSIS
     Dosage: UNK, UNK, QD
     Route: 061
     Dates: start: 202007
  2. AMITRIPTYLINE [Concomitant]
     Active Substance: AMITRIPTYLINE
     Indication: BLADDER DISORDER
     Dosage: UNK
  3. DRYSOL [Concomitant]
     Active Substance: ALUMINUM CHLORIDE
     Indication: HYPERHIDROSIS
     Dosage: UNK, UNK
     Route: 065
     Dates: end: 202007

REACTIONS (2)
  - Drug ineffective [Not Recovered/Not Resolved]
  - Hyperhidrosis [Not Recovered/Not Resolved]

NARRATIVE: CASE EVENT DATE: 202007
